FAERS Safety Report 7472454-8 (Version None)
Quarter: 2011Q2

REPORT INFORMATION
  Report Type: 
  Country: None (occurrence: None)
  Receive Date: 20110511
  Receipt Date: 20110503
  Transmission Date: 20111010
  Serious: Yes (Life-Threatening, Hospitalization, Disabling)
  Sender: FDA-Public Use
  Company Number: FI-NOVOPROD-327592

PATIENT
  Age: 56 Year
  Sex: Female

DRUGS (1)
  1. VAGIFEM [Suspect]
     Indication: VAGINAL INFECTION
     Dosage: 25 UG, QD
     Route: 067
     Dates: start: 20110122, end: 20110126

REACTIONS (1)
  - TRANSIENT ISCHAEMIC ATTACK [None]
